FAERS Safety Report 5621203-4 (Version None)
Quarter: 2008Q1

REPORT INFORMATION
  Report Type: 
  Country: None (occurrence: None)
  Receive Date: 20080114
  Receipt Date: 20061214
  Transmission Date: 20080703
  Serious: Yes (Hospitalization)
  Sender: FDA-Public Use
  Company Number: A03200607456

PATIENT
  Age: 67 Year
  Sex: Female
  Weight: 75.73 kg

DRUGS (7)
  1. PLAVIX [Suspect]
     Indication: CEREBROVASCULAR ACCIDENT
     Dosage: 75 MG QD - ORAL
     Route: 048
     Dates: start: 20020101
  2. PLAVIX [Suspect]
     Indication: DISEASE RECURRENCE
     Dosage: 75 MG QD - ORAL
     Route: 048
     Dates: start: 20020101
  3. PLAVIX [Suspect]
     Indication: PROPHYLAXIS
     Dosage: 75 MG QD - ORAL
     Route: 048
     Dates: start: 20020101
  4. TELMISARTAN [Concomitant]
  5. NISOLDIPINE [Concomitant]
  6. ACETYLSALICYLIC ACID SRT [Concomitant]
  7. RAMELTEON [Concomitant]

REACTIONS (3)
  - CEREBROVASCULAR ACCIDENT [None]
  - DYSARTHRIA [None]
  - GASTROENTERITIS VIRAL [None]
